FAERS Safety Report 4902368-6 (Version None)
Quarter: 2006Q1

REPORT INFORMATION
  Report Type: 
  Country: None (occurrence: None)
  Receive Date: 20060203
  Receipt Date: 20060203
  Transmission Date: 20060701
  Serious: Yes (Life-Threatening, Hospitalization)
  Sender: FDA-Public Use
  Company Number: None

PATIENT
  Age: 72 Year
  Sex: Male
  Weight: 74.8435 kg

DRUGS (1)
  1. HUMALOG [Suspect]
     Indication: DIABETES MELLITUS
     Dosage: 60 UNITS DAILY SQ
     Route: 058
     Dates: start: 20060118, end: 20060118

REACTIONS (3)
  - BLOOD GLUCOSE DECREASED [None]
  - DRUG PRESCRIBING ERROR [None]
  - MEDICATION ERROR [None]
